FAERS Safety Report 5743629-0 (Version None)
Quarter: 2008Q2

REPORT INFORMATION
  Report Type: 
  Country: None (occurrence: None)
  Receive Date: 20080516
  Receipt Date: 20080507
  Transmission Date: 20081010
  Serious: Yes (Other)
  Sender: FDA-Public Use
  Company Number: 2007SP017204

PATIENT
  Age: 50 Year
  Sex: Male

DRUGS (7)
  1. TEMODAL [Suspect]
     Indication: GLIOBLASTOMA MULTIFORME
     Dosage: 200 MG/M2; 100 MG/M2;
     Dates: start: 20050503, end: 20050604
  2. TEMODAL [Suspect]
     Indication: GLIOBLASTOMA MULTIFORME
     Dosage: 200 MG/M2; 100 MG/M2;
     Dates: start: 20050803, end: 20070701
  3. CARBAMAZEPINE [Concomitant]
  4. LAMOTRIGINE [Concomitant]
  5. OMEPRAZOLE [Concomitant]
  6. LITICAN [Concomitant]
  7. NOVABAN [Concomitant]

REACTIONS (1)
  - DIFFUSE LARGE B-CELL LYMPHOMA [None]
